FAERS Safety Report 24229082 (Version 2)
Quarter: 2024Q3

REPORT INFORMATION
  Report Type: Report from Study
  Country: US (occurrence: US)
  Receive Date: 20240820
  Receipt Date: 20240824
  Transmission Date: 20241016
  Serious: Yes (Other)
  Sender: ABBVIE
  Company Number: US-ABBVIE-5885417

PATIENT
  Age: 67 Year
  Sex: Female

DRUGS (1)
  1. RINVOQ [Suspect]
     Active Substance: UPADACITINIB
     Indication: Eczema
     Dosage: FORM STRENGTH : 15 MG/LAST ADMIN DATE 2024
     Route: 048
     Dates: start: 20240514

REACTIONS (1)
  - Ear operation [Recovering/Resolving]

NARRATIVE: CASE EVENT DATE: 20240815
